FAERS Safety Report 7625707-4 (Version None)
Quarter: 2011Q3

REPORT INFORMATION
  Report Type: 
  Country: None (occurrence: None)
  Receive Date: 20110721
  Receipt Date: 20110713
  Transmission Date: 20111222
  Serious: Yes (Hospitalization)
  Sender: FDA-Public Use
  Company Number: US-BRISTOL-MYERS SQUIBB COMPANY-15899552

PATIENT
  Age: 67 Year
  Sex: Male

DRUGS (2)
  1. AMPYRA [Suspect]
     Dates: start: 20100408, end: 20101201
  2. CEFEPIME [Suspect]
     Indication: WOUND INFECTION
     Route: 065
     Dates: start: 20101001, end: 20101201

REACTIONS (1)
  - TUBULOINTERSTITIAL NEPHRITIS [None]
